FAERS Safety Report 8952861 (Version 2)
Quarter: 2012Q4

REPORT INFORMATION
  Report Type: 
  Country: TR (occurrence: TR)
  Receive Date: 20121203
  Receipt Date: 20121217
  Transmission Date: 20130627
  Serious: Yes (Hospitalization)
  Sender: FDA-Public Use
  Company Number: PHHY2010TR094904

PATIENT
  Age: 28 Year
  Sex: Female

DRUGS (2)
  1. BUDESONIDE [Suspect]
     Indication: ASTHMA
  2. FORMOTEROL [Suspect]
     Indication: ASTHMA

REACTIONS (14)
  - Blood magnesium increased [Unknown]
  - Pre-eclampsia [Unknown]
  - White blood cell count increased [Unknown]
  - Blood pressure increased [Unknown]
  - Ventricular hypertrophy [Unknown]
  - Left atrial dilatation [Unknown]
  - Mitral valve incompetence [Unknown]
  - Asthma [Unknown]
  - Oxygen saturation decreased [Unknown]
  - Orthopnoea [Unknown]
  - Dyspnoea [Unknown]
  - Sinus tachycardia [Unknown]
  - Heart rate increased [Unknown]
  - Maternal exposure during pregnancy [Unknown]
